FAERS Safety Report 8890461 (Version 5)
Quarter: 2013Q3

REPORT INFORMATION
  Report Type: Spontaneous
  Country: US (occurrence: US)
  Receive Date: 20121107
  Receipt Date: 20130916
  Transmission Date: 20140515
  Serious: Yes (Death, Hospitalization)
  Sender: FDA-Public Use
  Company Number: US-B.I. PHARMACEUTICALS,INC./RIDGEFIELD-2012-BP-27217BP

PATIENT
  Age: 78 Year
  Sex: Female
  Weight: 43.09 kg

DRUGS (25)
  1. PRADAXA [Suspect]
     Indication: ATRIAL FIBRILLATION
     Dosage: 300 MG
     Route: 048
     Dates: start: 20110504
  2. PRADAXA [Suspect]
     Dates: end: 20120518
  3. VITAMIN C [Concomitant]
     Dosage: 500 MG
  4. VITAMIN D 3 [Concomitant]
     Dosage: 1000 U
  5. VITAMIN E [Concomitant]
     Dosage: 400 U
  6. MAGNESIUM [Concomitant]
     Dosage: 400 MG
  7. ALLOPURINOL [Concomitant]
     Dosage: 100 MG
     Route: 048
  8. BIPAP [Concomitant]
  9. BROMALINE [Concomitant]
  10. CALCIUM CARBONATE [Concomitant]
     Dosage: 1250 MG
  11. COENZYME Q10 [Concomitant]
     Dosage: 100 MG
  12. ZETIA [Concomitant]
     Dosage: 10 MG
     Route: 048
  13. ADVAIR [Concomitant]
     Route: 055
  14. FUROSEMIDE [Concomitant]
     Dosage: 80 MG
     Route: 048
  15. GLUCOTROL XL [Concomitant]
     Dosage: 2.5 MG
     Route: 048
  16. DUONEB [Concomitant]
  17. OMEPRAZOLE [Concomitant]
     Dosage: 20 MG
     Route: 048
  18. POTASSIUM CHLORIDE [Concomitant]
     Dosage: 20 MEQ
     Route: 048
  19. QUERCETIN OR [Concomitant]
  20. EVISTA [Concomitant]
     Dosage: 60 MG
     Route: 048
  21. CARAFATE [Concomitant]
     Dosage: 4 G
     Route: 048
  22. VERAPAMIL HCL [Concomitant]
     Dosage: 360 MG
  23. HYDROCODONE-ACETAMINOPHEN [Concomitant]
  24. OSTEO BI-FLEX [Concomitant]
  25. POLICOSANOL [Concomitant]
     Dosage: 10 MG

REACTIONS (5)
  - Shock haemorrhagic [Fatal]
  - Gastrointestinal haemorrhage [Fatal]
  - Coagulopathy [Fatal]
  - Respiratory failure [Unknown]
  - Rectal haemorrhage [Unknown]
